FAERS Safety Report 10168018 (Version 1)
Quarter: 2014Q2

REPORT INFORMATION
  Report Type: Spontaneous
  Country: TR (occurrence: TR)
  Receive Date: 20140512
  Receipt Date: 20140512
  Transmission Date: 20141212
  Serious: Yes (Other)
  Sender: FDA-Public Use
  Company Number: ALCN2014TR002785

PATIENT
  Age: 46 Year
  Sex: Male

DRUGS (1)
  1. MAXIDEX [Suspect]
     Indication: POSTOPERATIVE CARE
     Dosage: UNK
     Route: 047
     Dates: start: 20140416, end: 20140423

REACTIONS (2)
  - Punctate keratitis [Recovered/Resolved]
  - Corneal exfoliation [Recovered/Resolved]
